FAERS Safety Report 15378357 (Version 2)
Quarter: 2018Q3

REPORT INFORMATION
  Report Type: Spontaneous
  Country: US (occurrence: US)
  Receive Date: 20180913
  Receipt Date: 20180917
  Transmission Date: 20181010
  Serious: No
  Sender: FDA-Public Use
  Company Number: US-PFIZER INC-2018370061

PATIENT
  Age: 65 Year
  Sex: Female
  Weight: 65.77 kg

DRUGS (3)
  1. ALBUTEROL [SALBUTAMOL] [Concomitant]
     Active Substance: ALBUTEROL
     Indication: LUNG DISORDER
     Dosage: 2.5 MG, 4X/DAY [ONE VIAL IN THE NEBULIZER EVERY 6 HOURS]
     Dates: start: 201807
  2. CAMPTOSAR [Suspect]
     Active Substance: IRINOTECAN HYDROCHLORIDE
     Indication: APPENDIX CANCER
     Dosage: 224 MG 4 WEEKS ON 2 WEEKS OFF (9 CYCLES)
     Dates: start: 20180522, end: 20180821
  3. VENTILAN [SALBUTAMOL] [Concomitant]
     Indication: INHALATION THERAPY
     Dosage: 2 DF, AS NEEDED [THROUGHOUT THE DAY]

REACTIONS (6)
  - Pain [Not Recovered/Not Resolved]
  - Decreased appetite [Not Recovered/Not Resolved]
  - Diarrhoea [Not Recovered/Not Resolved]
  - Vomiting [Not Recovered/Not Resolved]
  - Back pain [Not Recovered/Not Resolved]
  - Bronchitis [Not Recovered/Not Resolved]

NARRATIVE: CASE EVENT DATE: 201806
